FAERS Safety Report 24928919 (Version 1)
Quarter: 2025Q1

REPORT INFORMATION
  Report Type: Spontaneous
  Country: US (occurrence: US)
  Receive Date: 20250205
  Receipt Date: 20250205
  Transmission Date: 20250409
  Serious: Yes (Other)
  Sender: pharmaAND
  Company Number: US-Pharmaand-2024001322

PATIENT
  Sex: Female

DRUGS (2)
  1. RUBRACA [Suspect]
     Active Substance: RUCAPARIB CAMSYLATE
     Indication: Ovarian cancer
     Dosage: 300 MG TABLETS 600MG TWICE DAILY
     Route: 048
  2. RUBRACA [Suspect]
     Active Substance: RUCAPARIB CAMSYLATE
     Dosage: 250MG TABLETS, 500MG ORALLY TWICE DAILY
     Route: 048

REACTIONS (1)
  - Ovarian cancer recurrent [Not Recovered/Not Resolved]
